FAERS Safety Report 13844831 (Version 11)
Quarter: 2020Q4

REPORT INFORMATION
  Report Type: Spontaneous
  Country: US (occurrence: US)
  Receive Date: 20170808
  Receipt Date: 20201021
  Transmission Date: 20210113
  Serious: Yes (Congenital Anomaly, Other)
  Sender: FDA-Public Use
  Company Number: PHEH2017US024653

PATIENT
  Sex: Male

DRUGS (2)
  1. ZOFRAN [Suspect]
     Active Substance: ONDANSETRON HYDROCHLORIDE
     Indication: FOETAL EXPOSURE DURING PREGNANCY
     Dosage: MOTHER DOSE: 08 MG, BID
     Route: 064
  2. ZOFRAN ODT [Suspect]
     Active Substance: ONDANSETRON HYDROCHLORIDE
     Indication: FOETAL EXPOSURE DURING PREGNANCY
     Dosage: MOTHER^S DOSE: 8 MG, PRN
     Route: 064

REACTIONS (28)
  - Bicuspid aortic valve [Unknown]
  - Injury [Unknown]
  - Asthma [Unknown]
  - Nasopharyngitis [Unknown]
  - Decreased appetite [Unknown]
  - Erythema [Unknown]
  - Dyspepsia [Unknown]
  - Aortic valve disease [Unknown]
  - Gastrooesophageal reflux disease [Unknown]
  - Cough [Unknown]
  - Anaemia [Unknown]
  - Foetal exposure during pregnancy [Unknown]
  - Biotin deficiency [Unknown]
  - Nasal congestion [Unknown]
  - Anxiety [Unknown]
  - Stomatitis [Unknown]
  - Kyphosis [Unknown]
  - Rhinorrhoea [Unknown]
  - Viral infection [Unknown]
  - Intervertebral disc protrusion [Unknown]
  - Aortic dilatation [Unknown]
  - Rash [Unknown]
  - Diarrhoea [Unknown]
  - Dyspnoea [Unknown]
  - Congenital aortic valve incompetence [Unknown]
  - Cardiac murmur [Unknown]
  - Upper respiratory tract infection [Unknown]
  - Pyrexia [Unknown]
